FAERS Safety Report 13029078 (Version 1)
Quarter: 2016Q4

REPORT INFORMATION
  Report Type: Spontaneous
  Country: US (occurrence: US)
  Receive Date: 20161215
  Receipt Date: 20161215
  Transmission Date: 20170207
  Serious: Yes (Other)
  Sender: FDA-Public Use
  Company Number: US-BAXTER-2016BAX062418

PATIENT
  Age: 66 Year
  Sex: Female

DRUGS (2)
  1. CYCLOPHOSPHAMIDE FOR INJECTION, USP [Suspect]
     Active Substance: CYCLOPHOSPHAMIDE
     Indication: PRODUCT USED FOR UNKNOWN INDICATION
     Route: 065
  2. PREDNISONE. [Suspect]
     Active Substance: PREDNISONE
     Indication: PRODUCT USED FOR UNKNOWN INDICATION
     Dosage: USP
     Route: 065

REACTIONS (6)
  - Transient ischaemic attack [Unknown]
  - Hepatitis [Unknown]
  - Abnormal behaviour [Unknown]
  - Abasia [Unknown]
  - Anaemia [Unknown]
  - Diarrhoea [Unknown]
